FAERS Safety Report 13449362 (Version 2)
Quarter: 2017Q2

REPORT INFORMATION
  Report Type: Spontaneous
  Country: US (occurrence: US)
  Receive Date: 20170417
  Receipt Date: 20170420
  Transmission Date: 20170830
  Serious: No
  Sender: FDA-Public Use
  Company Number: US-PFIZER INC-2017165387

PATIENT
  Age: 9 Year
  Sex: Male
  Weight: 27 kg

DRUGS (1)
  1. GENOTROPIN [Suspect]
     Active Substance: SOMATROPIN
     Indication: SILVER-RUSSELL SYNDROME
     Dosage: UNK UNK, DAILY (0.6 NOT SURE IF MG OR ML, THINK ML-INJECTED DAILY)
     Dates: end: 201704

REACTIONS (5)
  - Incorrect dose administered [Recovered/Resolved]
  - Injection site erythema [Recovered/Resolved]
  - Product use in unapproved indication [Recovered/Resolved]
  - Injection site irritation [Recovered/Resolved]
  - Injection site pain [Recovered/Resolved]
